FAERS Safety Report 7153197-7 (Version None)
Quarter: 2010Q4

REPORT INFORMATION
  Report Type: 
  Country: None (occurrence: None)
  Receive Date: 20101213
  Receipt Date: 20101129
  Transmission Date: 20110411
  Serious: Yes (Hospitalization, Disabling, Other)
  Sender: FDA-Public Use
  Company Number: US-ELI_LILLY_AND_COMPANY-US200811002876

PATIENT
  Sex: Female

DRUGS (32)
  1. CYMBALTA [Suspect]
     Indication: FIBROMYALGIA
     Dosage: 60 MG, UNK
     Dates: start: 20060515
  2. CYMBALTA [Suspect]
     Dosage: 30 MG, DAILY (1/D)
     Dates: start: 20080201, end: 20080101
  3. CYMBALTA [Suspect]
     Dosage: 60 MG, DAILY (1/D)
     Dates: start: 20080401, end: 20080814
  4. CYMBALTA [Suspect]
     Dosage: 90 MG, DAILY (1/D)
     Dates: end: 20080801
  5. CYMBALTA [Suspect]
     Dosage: 90 MG, DAILY (1/D)
     Dates: start: 20081015
  6. RAMELTEON [Concomitant]
  7. AMITRIPTYLINE [Concomitant]
  8. POTASSIUM CHLORIDE [Concomitant]
  9. GABAPENTIN [Concomitant]
  10. SINGULAIR [Concomitant]
  11. PROVENTIL-HFA [Concomitant]
  12. ADVAIR DISKUS 100/50 [Concomitant]
  13. SOMA [Concomitant]
  14. LORTAB [Concomitant]
  15. LEVOTHYROXINE SODIUM [Concomitant]
  16. OXYCODONE HCL [Concomitant]
  17. MULTI-VITAMIN [Concomitant]
  18. VITAMIN B [Concomitant]
  19. THERA-GESIC [Concomitant]
     Route: 061
  20. VALIUM [Concomitant]
  21. PERCODAN                           /00090001/ [Concomitant]
  22. HYDROCODONE [Concomitant]
  23. ALBUTEROL [Concomitant]
  24. HYZAAR [Concomitant]
  25. GOLD SEAL ANTISEPTIC POWDER [Concomitant]
  26. POTASSIUM CHLORIDE [Concomitant]
  27. DILAUDID [Concomitant]
     Dosage: 4 MG, UNK
     Route: 048
     Dates: start: 20100907
  28. PROZAC [Concomitant]
     Dosage: 40 MG, EACH MORNING
     Route: 048
     Dates: start: 20100907
  29. MEDROL [Concomitant]
     Dosage: 4 MG, EACH MORNING
     Dates: start: 20100409
  30. AMITIZA [Concomitant]
     Dosage: 8 UG, 2/D
     Dates: start: 20100331
  31. PRENATAL [Concomitant]
     Dates: start: 20100319
  32. EVAMIST [Concomitant]
     Dosage: 1.53 MG, DAILY (1/D)

REACTIONS (34)
  - ABDOMINAL PAIN [None]
  - ALANINE AMINOTRANSFERASE INCREASED [None]
  - ANTINUCLEAR ANTIBODY POSITIVE [None]
  - ARTHRALGIA [None]
  - ASPARTATE AMINOTRANSFERASE INCREASED [None]
  - ASTHENIA [None]
  - BACK PAIN [None]
  - BLISTER [None]
  - BLOOD ALKALINE PHOSPHATASE INCREASED [None]
  - CARDIAC ENZYMES INCREASED [None]
  - CHEST DISCOMFORT [None]
  - CHROMATURIA [None]
  - CONSTIPATION [None]
  - CONVULSION [None]
  - DISABILITY [None]
  - DIZZINESS [None]
  - DRUG INEFFECTIVE [None]
  - FALL [None]
  - HAEMATOMA [None]
  - HEADACHE [None]
  - HEMIPARESIS [None]
  - INJURY [None]
  - LIVER DISORDER [None]
  - LOSS OF CONSCIOUSNESS [None]
  - LUNG DISORDER [None]
  - MEDICATION ERROR [None]
  - MUSCLE INJURY [None]
  - NEUROPATHY PERIPHERAL [None]
  - PAIN [None]
  - PNEUMONIA [None]
  - RENAL FAILURE [None]
  - RHABDOMYOLYSIS [None]
  - SYNCOPE [None]
  - YELLOW SKIN [None]
